FAERS Safety Report 6198526-6 (Version None)
Quarter: 2009Q2

REPORT INFORMATION
  Report Type: 
  Country: None (occurrence: None)
  Receive Date: 20090521
  Receipt Date: 20090514
  Transmission Date: 20091009
  Serious: Yes (Other)
  Sender: FDA-Public Use
  Company Number: PHEH2009US00730

PATIENT
  Sex: Female

DRUGS (9)
  1. AREDIA [Suspect]
     Indication: NEOPLASM MALIGNANT
     Dosage: 90 MG, QMO
     Route: 042
     Dates: end: 20070101
  2. CHEMOTHERAPEUTICS NOS [Concomitant]
  3. RADIATION THERAPY [Concomitant]
  4. LOTREL [Concomitant]
     Dosage: UNK
  5. ZOLOFT [Concomitant]
     Dosage: 100 MG, QD
  6. DITROPAN XL [Concomitant]
     Dosage: UNK
  7. PREVACID [Concomitant]
  8. IRON [Concomitant]
  9. ALLOPURINOL [Concomitant]

REACTIONS (17)
  - ABSCESS DRAINAGE [None]
  - ANAEMIA [None]
  - ATRIAL FIBRILLATION [None]
  - DEPRESSION [None]
  - DYSPEPSIA [None]
  - DYSPHAGIA [None]
  - FALL [None]
  - GASTROOESOPHAGEAL REFLUX DISEASE [None]
  - IRRITABLE BOWEL SYNDROME [None]
  - JAW FRACTURE [None]
  - OSTEOARTHRITIS [None]
  - OSTEONECROSIS [None]
  - PAIN [None]
  - RENAL FAILURE CHRONIC [None]
  - SPINAL LAMINECTOMY [None]
  - TOOTH EXTRACTION [None]
  - URINARY TRACT INFECTION [None]
